FAERS Safety Report 17462879 (Version 1)
Quarter: 2020Q1

REPORT INFORMATION
  Report Type: Spontaneous
  Country: US (occurrence: US)
  Receive Date: 20200226
  Receipt Date: 20200226
  Transmission Date: 20200409
  Serious: Yes (Other)
  Sender: FDA-Public Use
  Company Number: US-TEVA-2020-US-1190232

PATIENT
  Age: 21 Year
  Sex: Male

DRUGS (2)
  1. FILGRASTIM [Suspect]
     Active Substance: FILGRASTIM
     Indication: HEPATITIS
  2. FILGRASTIM [Suspect]
     Active Substance: FILGRASTIM
     Indication: APLASTIC ANAEMIA
     Route: 065

REACTIONS (1)
  - Treatment failure [Unknown]
